FAERS Safety Report 4617819-4 (Version None)
Quarter: 2005Q1

REPORT INFORMATION
  Report Type: 
  Country: None (occurrence: None)
  Receive Date: 20050322
  Receipt Date: 20050314
  Transmission Date: 20050727
  Serious: Yes (Life-Threatening, Other)
  Sender: FDA-Public Use
  Company Number: 200510124BCA

PATIENT
  Age: 49 Year
  Sex: Female

DRUGS (4)
  1. AVELOX [Suspect]
     Indication: BRONCHITIS
     Dosage: 400 MG, QD, ORAL
     Route: 048
     Dates: start: 20050228, end: 20050307
  2. AVELOX [Suspect]
     Indication: URINARY TRACT INFECTION
     Dosage: 400 MG, QD, ORAL
     Route: 048
     Dates: start: 20050228, end: 20050307
  3. ROBITUSSN [Concomitant]
  4. NEXIUM [Concomitant]

REACTIONS (1)
  - HYPOGLYCAEMIA [None]
